FAERS Safety Report 10967991 (Version 1)
Quarter: 2015Q1

REPORT INFORMATION
  Report Type: Other
  Country: GB (occurrence: GB)
  Receive Date: 20150330
  Receipt Date: 20150330
  Transmission Date: 20150721
  Serious: Yes (Other)
  Sender: FDA-Public Use
  Company Number: GB-MYLANLABS-2015M1008570

PATIENT

DRUGS (1)
  1. TELMISARTAN. [Suspect]
     Active Substance: TELMISARTAN
     Indication: HYPERTENSION
     Dosage: 40 MG, QD
     Route: 048
     Dates: start: 20150123, end: 20150303

REACTIONS (4)
  - Hot flush [Recovering/Resolving]
  - Feeling hot [Recovering/Resolving]
  - Drug ineffective [Unknown]
  - Urine odour abnormal [Recovering/Resolving]

NARRATIVE: CASE EVENT DATE: 20150127
